FAERS Safety Report 10053594 (Version 2)
Quarter: 2015Q2

REPORT INFORMATION
  Report Type: Spontaneous
  Country: US (occurrence: US)
  Receive Date: 20140402
  Receipt Date: 20150417
  Transmission Date: 20150821
  Serious: Yes (Life-Threatening, Hospitalization, Congenital Anomaly, Other)
  Sender: FDA-Public Use
  Company Number: US-ELI_LILLY_AND_COMPANY-US201403008288

PATIENT

DRUGS (20)
  1. FERROUS SULFATE [Concomitant]
     Active Substance: FERROUS SULFATE\FERROUS SULFATE, DRIED
     Route: 064
  2. CEFTIN [Concomitant]
     Active Substance: CEFUROXIME AXETIL
  3. TYLENOL [Concomitant]
     Active Substance: ACETAMINOPHEN
     Route: 064
  4. TYLENOL [Concomitant]
     Active Substance: ACETAMINOPHEN
     Route: 064
  5. WELLBUTRIN [Concomitant]
     Active Substance: BUPROPION HYDROCHLORIDE
     Route: 064
  6. PROZAC [Suspect]
     Active Substance: FLUOXETINE HYDROCHLORIDE
     Indication: PREMENSTRUAL SYNDROME
     Dosage: 20 MG, QD
     Route: 064
     Dates: start: 19960612, end: 19970120
  7. MONISTAT [Concomitant]
     Active Substance: MICONAZOLE NITRATE
     Route: 064
  8. CEFTIN [Concomitant]
     Active Substance: CEFUROXIME AXETIL
  9. FERROUS SULFATE [Concomitant]
     Active Substance: FERROUS SULFATE\FERROUS SULFATE, DRIED
     Route: 064
  10. TERBUTALINE [Concomitant]
     Active Substance: TERBUTALINE
     Route: 064
  11. PROZAC [Suspect]
     Active Substance: FLUOXETINE HYDROCHLORIDE
     Indication: DEPRESSION
     Dosage: 20 MG, BID
     Route: 048
     Dates: start: 1995
  12. WELLBUTRIN [Concomitant]
     Active Substance: BUPROPION HYDROCHLORIDE
     Route: 064
  13. PENICILLIN                         /00000901/ [Concomitant]
     Active Substance: PENICILLIN
     Route: 064
  14. MONISTAT [Concomitant]
     Active Substance: MICONAZOLE NITRATE
     Route: 064
  15. BETAMETHASONE [Concomitant]
     Active Substance: BETAMETHASONE
     Route: 064
  16. PENICILLIN                         /00000901/ [Concomitant]
     Active Substance: PENICILLIN
     Route: 064
  17. BETAMETHASONE [Concomitant]
     Active Substance: BETAMETHASONE
     Route: 064
  18. PROZAC [Suspect]
     Active Substance: FLUOXETINE HYDROCHLORIDE
     Indication: DEPRESSION
     Dosage: 20 MG, BID
     Route: 048
     Dates: start: 1995
  19. PROZAC [Suspect]
     Active Substance: FLUOXETINE HYDROCHLORIDE
     Indication: PREMENSTRUAL SYNDROME
     Dosage: 20 MG, QD
     Route: 064
     Dates: start: 19960612, end: 19970120
  20. TERBUTALINE [Concomitant]
     Active Substance: TERBUTALINE
     Route: 064

REACTIONS (17)
  - Neonatal respiratory distress syndrome [Recovered/Resolved]
  - Exomphalos [Recovered/Resolved with Sequelae]
  - Premature baby [Recovered/Resolved]
  - Congenital foot malformation [Unknown]
  - Acquired hydrocele [Unknown]
  - Bronchopulmonary dysplasia [Recovered/Resolved]
  - Hypoproteinaemia [Recovered/Resolved]
  - Dyslexia [Unknown]
  - Coagulopathy [Recovered/Resolved]
  - Anaemia [Recovered/Resolved]
  - Feeding disorder neonatal [Recovered/Resolved]
  - Gastrointestinal disorder [Unknown]
  - Pulmonary valve stenosis [Recovered/Resolved]
  - Thrombocytopenia [Recovered/Resolved]
  - Attention deficit/hyperactivity disorder [Unknown]
  - Anxiety [Unknown]
  - Foetal exposure during pregnancy [Recovered/Resolved]
